FAERS Safety Report 8152596-4 (Version None)
Quarter: 2012Q1

REPORT INFORMATION
  Report Type: 
  Country: None (occurrence: None)
  Receive Date: 20120221
  Receipt Date: 20111230
  Transmission Date: 20120608
  Serious: Yes (Other)
  Sender: FDA-Public Use
  Company Number: CA-JNJFOC-20120200773

PATIENT
  Sex: Female
  Weight: 81.5 kg

DRUGS (6)
  1. METHOTREXATE [Concomitant]
     Dosage: THREE PILLS WEEKLY
     Route: 065
  2. REMICADE [Suspect]
     Indication: COLITIS ULCERATIVE
     Route: 042
  3. HYDROCHLOROTHIAZIDE [Concomitant]
     Route: 065
  4. RAMIPRIL [Concomitant]
     Route: 065
  5. LIQUID POTASSIUM [Concomitant]
     Route: 065
  6. DOMPERIDONE [Concomitant]
     Route: 065

REACTIONS (3)
  - RIB FRACTURE [None]
  - INFECTION [None]
  - FALL [None]
